FAERS Safety Report 7641392-X (Version None)
Quarter: 2011Q3

REPORT INFORMATION
  Report Type: 
  Country: None (occurrence: None)
  Receive Date: 20110727
  Receipt Date: 20110727
  Transmission Date: 20111222
  Serious: Yes (Other)
  Sender: FDA-Public Use
  Company Number: None

PATIENT
  Sex: Female

DRUGS (1)
  1. LAMICTAL [Suspect]
     Dosage: 100MG QID PO
     Route: 048
     Dates: start: 20110401

REACTIONS (4)
  - DIZZINESS [None]
  - PRODUCT SUBSTITUTION ISSUE [None]
  - BALANCE DISORDER [None]
  - CONFUSIONAL STATE [None]
